FAERS Safety Report 18606619 (Version 1)
Quarter: 2020Q4

REPORT INFORMATION
  Report Type: Spontaneous
  Country: US (occurrence: US)
  Receive Date: 20201211
  Receipt Date: 20201211
  Transmission Date: 20210114
  Serious: Yes (Death)
  Sender: FDA-Public Use
  Company Number: US-COLLEGIUM PHARMACEUTICAL, INC.-2020CGM01067

PATIENT
  Sex: Male

DRUGS (1)
  1. XTAMPZA ER [Suspect]
     Active Substance: OXYCODONE

REACTIONS (1)
  - Death [Fatal]
